FAERS Safety Report 24560332 (Version 1)
Quarter: 2024Q4

REPORT INFORMATION
  Report Type: Spontaneous
  Country: US (occurrence: US)
  Receive Date: 20241029
  Receipt Date: 20241029
  Transmission Date: 20250115
  Serious: No
  Sender: ASTELLAS
  Company Number: US-ASTELLAS-2024-AER-014357

PATIENT
  Age: 50 Year
  Sex: Female

DRUGS (1)
  1. VEOZAH [Suspect]
     Active Substance: FEZOLINETANT
     Indication: Product used for unknown indication
     Route: 065
     Dates: start: 2024

REACTIONS (9)
  - Hypoaesthesia [Unknown]
  - Cardiovascular disorder [Unknown]
  - Night sweats [Unknown]
  - Palpitations [Unknown]
  - Feeling abnormal [Unknown]
  - Insomnia [Unknown]
  - Product size issue [Unknown]
  - Product label issue [Unknown]
  - Product colour issue [Unknown]

NARRATIVE: CASE EVENT DATE: 20240801
